FAERS Safety Report 11697812 (Version 1)
Quarter: 2015Q4

REPORT INFORMATION
  Report Type: Spontaneous
  Country: US (occurrence: US)
  Receive Date: 20151104
  Receipt Date: 20151104
  Transmission Date: 20160304
  Serious: No
  Sender: FDA-Public Use
  Company Number: US-APOPHARMA USA, INC.-2012AP000379

PATIENT
  Age: 63 Year
  Sex: Male
  Weight: 68 kg

DRUGS (8)
  1. FERRIPROX [Suspect]
     Active Substance: DEFERIPRONE
     Indication: HAEMOCHROMATOSIS
     Route: 048
     Dates: start: 20120117, end: 20120124
  2. GLUCOPHAGE [Concomitant]
     Active Substance: METFORMIN HYDROCHLORIDE
  3. FERRIPROX [Suspect]
     Active Substance: DEFERIPRONE
     Indication: THALASSAEMIA
  4. DIGOXIN. [Concomitant]
     Active Substance: DIGOXIN
  5. FLUOXETINE [Concomitant]
     Active Substance: FLUOXETINE HYDROCHLORIDE
  6. PROPRANOLOL [Concomitant]
     Active Substance: PROPRANOLOL\PROPRANOLOL HYDROCHLORIDE
  7. DEFEROXAMINE [Concomitant]
     Active Substance: DEFEROXAMINE\DEFEROXAMINE MESYLATE
  8. LOSARTAN. [Concomitant]
     Active Substance: LOSARTAN

REACTIONS (3)
  - Dizziness [Recovered/Resolved]
  - Dizziness [Recovering/Resolving]
  - Vertigo [Recovering/Resolving]

NARRATIVE: CASE EVENT DATE: 20120118
